FAERS Safety Report 6429055-X (Version None)
Quarter: 2009Q4

REPORT INFORMATION
  Report Type: 
  Country: None (occurrence: None)
  Receive Date: 20091102
  Receipt Date: 20091023
  Transmission Date: 20100525
  Serious: Yes (Hospitalization)
  Sender: FDA-Public Use
  Company Number: 8053101

PATIENT
  Age: 50 Year
  Sex: Female
  Weight: 87.5 kg

DRUGS (9)
  1. CDP870 [Suspect]
     Dosage: 400 MG /M SC
     Route: 058
     Dates: start: 20030829, end: 20040209
  2. CDP870 [Suspect]
     Dosage: 400 MG /M SC
     Route: 058
     Dates: start: 20040401
  3. LOTREL [Concomitant]
  4. FLEXERIL [Concomitant]
  5. EFFEXOR [Concomitant]
  6. MOBIC [Concomitant]
  7. DEPO-PROVERA [Concomitant]
  8. MAXZIDE [Concomitant]
  9. CYMBALTA [Concomitant]

REACTIONS (1)
  - PNEUMONIA [None]
